FAERS Safety Report 17025797 (Version 4)
Quarter: 2020Q3

REPORT INFORMATION
  Report Type: Spontaneous
  Country: US (occurrence: US)
  Receive Date: 20191113
  Receipt Date: 20200827
  Transmission Date: 20201102
  Serious: No
  Sender: FDA-Public Use
  Company Number: US-PFIZER INC-2019379965

PATIENT
  Age: 68 Year
  Sex: Female
  Weight: 49 kg

DRUGS (5)
  1. CYCLOBENZAPRINE HCL [Concomitant]
     Active Substance: CYCLOBENZAPRINE HYDROCHLORIDE
     Indication: FIBROMYALGIA
     Dosage: 5 MG, 2X/DAY
  2. LYRICA [Suspect]
     Active Substance: PREGABALIN
     Indication: FIBROMYALGIA
     Dosage: 100 MG, UNK (TAKE 1 (ONE) CAP THREE TIMES A DAY (TID)? FOUR TIMES A DAY (QID))
     Route: 048
  3. LYRICA [Suspect]
     Active Substance: PREGABALIN
     Indication: NEURALGIA
     Dosage: 100 MG, 4X/DAY
  4. CYCLOBENZAPRINE HCL [Concomitant]
     Active Substance: CYCLOBENZAPRINE HYDROCHLORIDE
     Indication: MUSCLE SPASMS
  5. LYRICA [Suspect]
     Active Substance: PREGABALIN
     Indication: MUSCLE SPASMS
     Dosage: 100 MG (TAKE 1 CAPSULE BY MOUTH THREE TIMES A DAY OR 4 TIMES A DAY)
     Route: 048

REACTIONS (1)
  - Drug ineffective [Unknown]
